FAERS Safety Report 22217344 (Version 2)
Quarter: 2023Q2

REPORT INFORMATION
  Report Type: Spontaneous
  Country: CN (occurrence: CN)
  Receive Date: 20230417
  Receipt Date: 20230424
  Transmission Date: 20230722
  Serious: Yes (Other)
  Sender: FDA-Public Use
  Company Number: CN-002147023-NVSC2023CN084396

PATIENT
  Age: 53 Year
  Sex: Female
  Weight: 52 kg

DRUGS (6)
  1. SACUBITRIL\VALSARTAN [Suspect]
     Active Substance: SACUBITRIL\VALSARTAN
     Indication: Coronary artery disease
     Dosage: 100 MG, QD
     Route: 048
     Dates: start: 20230303, end: 20230304
  2. SACUBITRIL\VALSARTAN [Suspect]
     Active Substance: SACUBITRIL\VALSARTAN
     Indication: Ventricular remodelling
  3. ISOSORBIDE MONONITRATE [Suspect]
     Active Substance: ISOSORBIDE MONONITRATE
     Indication: Coronary artery disease
     Dosage: 40 MG, QD
     Route: 048
     Dates: start: 20230302, end: 20230304
  4. ISOSORBIDE MONONITRATE [Suspect]
     Active Substance: ISOSORBIDE MONONITRATE
     Indication: Coronary artery dilatation
  5. NESIRITIDE [Suspect]
     Active Substance: NESIRITIDE
     Indication: Coronary artery disease
     Dosage: 0.50 MG, BID
     Route: 041
     Dates: start: 20230303, end: 20230304
  6. NESIRITIDE [Suspect]
     Active Substance: NESIRITIDE
     Indication: Cardiac failure

REACTIONS (2)
  - Hypotension [Recovering/Resolving]
  - Product use in unapproved indication [Unknown]

NARRATIVE: CASE EVENT DATE: 20230303
